FAERS Safety Report 4584743-5 (Version None)
Quarter: 2005Q1

REPORT INFORMATION
  Report Type: 
  Country: None (occurrence: None)
  Receive Date: 20050215
  Receipt Date: 20030204
  Transmission Date: 20050727
  Serious: No
  Sender: FDA-Public Use
  Company Number: C03-T-014

PATIENT
  Sex: Male

DRUGS (1)
  1. CARISOPRODOL [Suspect]
     Indication: MUSCLE SPASMS

REACTIONS (6)
  - DIARRHOEA [None]
  - HEADACHE [None]
  - IRRITABILITY [None]
  - PAIN [None]
  - PHARMACEUTICAL PRODUCT COMPLAINT [None]
  - TENSION [None]
